FAERS Safety Report 6025178-8 (Version None)
Quarter: 2008Q4

REPORT INFORMATION
  Report Type: 
  Country: None (occurrence: None)
  Receive Date: 20081229
  Receipt Date: 20081229
  Transmission Date: 20090506
  Serious: Yes (Other)
  Sender: FDA-Public Use
  Company Number: None

PATIENT
  Age: 58 Year
  Sex: Female
  Weight: 69.4003 kg

DRUGS (1)
  1. NIASPAN [Suspect]
     Indication: BLOOD CHOLESTEROL INCREASED
     Dosage: 1/2 TABLET FOR 4 WEEKS, THEN 1 1X DAILY PO
     Route: 048
     Dates: start: 20081101, end: 20081226

REACTIONS (5)
  - ANXIETY [None]
  - BURNING SENSATION [None]
  - DISCOMFORT [None]
  - ERYTHEMA [None]
  - RASH GENERALISED [None]
